FAERS Safety Report 9762678 (Version 1)
Quarter: 2013Q4

REPORT INFORMATION
  Report Type: Spontaneous
  Country: US (occurrence: US)
  Receive Date: 20131216
  Receipt Date: 20131216
  Transmission Date: 20140711
  Serious: No
  Sender: FDA-Public Use
  Company Number: US-BIOGENIDEC-2013BI103861

PATIENT
  Sex: Female

DRUGS (9)
  1. TECFIDERA [Suspect]
     Indication: MULTIPLE SCLEROSIS
     Route: 048
     Dates: start: 20130926
  2. ALEVE [Concomitant]
  3. AMPYRA [Concomitant]
  4. ASPIRIN [Concomitant]
  5. CALCIUM 600 + D PLUS MINERALS [Concomitant]
  6. CO Q10 [Concomitant]
  7. GABAPENTIN [Concomitant]
  8. OMEGA 3 [Concomitant]
  9. PRAVASTATIN SODIUM [Concomitant]

REACTIONS (2)
  - Gait disturbance [Unknown]
  - Myalgia [Unknown]
